FAERS Safety Report 18681544 (Version 1)
Quarter: 2020Q4

REPORT INFORMATION
  Report Type: Spontaneous
  Country: US (occurrence: US)
  Receive Date: 20201229
  Receipt Date: 20201229
  Transmission Date: 20210114
  Serious: No
  Sender: FDA-Public Use
  Company Number: None

PATIENT
  Age: 89 Year
  Sex: Male
  Weight: 61.2 kg

DRUGS (4)
  1. TAMSULOSIN [Concomitant]
     Active Substance: TAMSULOSIN
  2. TRESIBA [Suspect]
     Active Substance: INSULIN DEGLUDEC
     Indication: DIABETES MELLITUS
     Dosage: ?          QUANTITY:7 UNITS;?
     Route: 058
  3. LOSARTAN. [Concomitant]
     Active Substance: LOSARTAN
  4. PACEMAKER [Suspect]
     Active Substance: DEVICE

REACTIONS (3)
  - Dyspnoea [None]
  - Heart rate decreased [None]
  - Hypersensitivity [None]

NARRATIVE: CASE EVENT DATE: 20200824
